FAERS Safety Report 12610232 (Version 1)
Quarter: 2016Q3

REPORT INFORMATION
  Report Type: Spontaneous
  Country: US (occurrence: None)
  Receive Date: 20160729
  Receipt Date: 20160729
  Transmission Date: 20161109
  Serious: Yes (Life-Threatening, Hospitalization, Disabling)
  Sender: FDA-Public Use
  Company Number: None

PATIENT
  Age: 45 Year
  Sex: Male
  Weight: 117.94 kg

DRUGS (1)
  1. LEVAQUIN [Suspect]
     Active Substance: LEVOFLOXACIN
     Indication: PNEUMONIA
     Dates: start: 20140120, end: 20140201

REACTIONS (17)
  - Pharyngeal oedema [None]
  - Burning sensation [None]
  - Vision blurred [None]
  - Tendon pain [None]
  - Generalised oedema [None]
  - Hallucination [None]
  - Loss of consciousness [None]
  - Diarrhoea [None]
  - Hypoaesthesia [None]
  - Paraesthesia [None]
  - Acute kidney injury [None]
  - Paranoia [None]
  - Colitis ulcerative [None]
  - Memory impairment [None]
  - Swollen tongue [None]
  - Neuropathy peripheral [None]
  - Tinnitus [None]

NARRATIVE: CASE EVENT DATE: 20140121
